FAERS Safety Report 26086257 (Version 1)
Quarter: 2025Q4

REPORT INFORMATION
  Report Type: Report from Study
  Country: US (occurrence: US)
  Receive Date: 20251125
  Receipt Date: 20251125
  Transmission Date: 20260117
  Serious: Yes (Hospitalization, Other)
  Sender: ABBVIE
  Company Number: US-ABBVIE-6541190

PATIENT
  Sex: Female
  Weight: 61 kg

DRUGS (4)
  1. HUMIRA [Suspect]
     Active Substance: ADALIMUMAB
     Indication: Colitis microscopic
     Dosage: FORM STRENGTH: 40 MILLIGRAM
     Route: 058
     Dates: start: 202502
  2. CRESTOR [Concomitant]
     Active Substance: ROSUVASTATIN CALCIUM
     Indication: Blood cholesterol increased
  3. XANAX [Concomitant]
     Active Substance: ALPRAZOLAM
     Indication: Anxiety
  4. QUESTRAN [Suspect]
     Active Substance: CHOLESTYRAMINE
     Indication: Product used for unknown indication
     Route: 065

REACTIONS (12)
  - Abdominal pain [Unknown]
  - Gastric polyps [Unknown]
  - Diarrhoea [Unknown]
  - Weight decreased [Unknown]
  - Constipation [Recovering/Resolving]
  - Dehydration [Unknown]
  - Colitis microscopic [Unknown]
  - Bile acid malabsorption [Unknown]
  - Gastric ulcer [Unknown]
  - Gastric haemorrhage [Unknown]
  - Dysphagia [Unknown]
  - Oesophageal dilation procedure [Unknown]

NARRATIVE: CASE EVENT DATE: 20250101
